FAERS Safety Report 10101987 (Version 18)
Quarter: 2015Q1

REPORT INFORMATION
  Report Type: Report from Study
  Country: CA (occurrence: CA)
  Receive Date: 20140424
  Receipt Date: 20150323
  Transmission Date: 20150720
  Serious: Yes (Other)
  Sender: FDA-Public Use
  Company Number: CA-ROCHE-1375911

PATIENT
  Age: 27 Year
  Sex: Female
  Weight: 98.7 kg

DRUGS (17)
  1. KADCYLA [Suspect]
     Active Substance: ADO-TRASTUZUMAB EMTANSINE
     Route: 042
     Dates: start: 20140501
  2. DECADRON [Suspect]
     Active Substance: DEXAMETHASONE
     Indication: HER-2 POSITIVE BREAST CANCER
     Route: 065
  3. KADCYLA [Suspect]
     Active Substance: ADO-TRASTUZUMAB EMTANSINE
     Route: 042
     Dates: start: 20140710
  4. KADCYLA [Suspect]
     Active Substance: ADO-TRASTUZUMAB EMTANSINE
     Route: 042
     Dates: start: 20140731
  5. KADCYLA [Suspect]
     Active Substance: ADO-TRASTUZUMAB EMTANSINE
     Route: 042
     Dates: start: 20141106
  6. VINORELBINE [Suspect]
     Active Substance: VINORELBINE\VINORELBINE TARTRATE
     Indication: BREAST CANCER
     Route: 065
     Dates: start: 201206, end: 201402
  7. TAXOL [Suspect]
     Active Substance: PACLITAXEL
     Indication: BREAST CANCER
     Route: 065
     Dates: start: 200606, end: 200608
  8. XELODA [Suspect]
     Active Substance: CAPECITABINE
     Indication: BREAST CANCER
     Route: 065
     Dates: start: 20110311, end: 20110429
  9. KADCYLA [Suspect]
     Active Substance: ADO-TRASTUZUMAB EMTANSINE
     Route: 042
     Dates: start: 20140612
  10. TAXOTERE [Suspect]
     Active Substance: DOCETAXEL
     Indication: BREAST CANCER
     Route: 065
     Dates: start: 200903, end: 201103
  11. FRAGMIN [Suspect]
     Active Substance: DALTEPARIN SODIUM
     Indication: BREAST CANCER
     Route: 065
  12. HERCEPTIN [Suspect]
     Active Substance: TRASTUZUMAB
     Route: 065
     Dates: start: 20140501
  13. PERJETA [Suspect]
     Active Substance: PERTUZUMAB
     Indication: BREAST CANCER
     Route: 065
     Dates: start: 20110311, end: 20120311
  14. KADCYLA [Suspect]
     Active Substance: ADO-TRASTUZUMAB EMTANSINE
     Indication: HER-2 POSITIVE BREAST CANCER
     Route: 042
     Dates: start: 20140404
  15. ADRIAMYCIN [Concomitant]
     Active Substance: DOXORUBICIN HYDROCHLORIDE
     Route: 065
     Dates: start: 200606, end: 200608
  16. VAGIFEM [Concomitant]
     Active Substance: ESTRADIOL
  17. HERCEPTIN [Suspect]
     Active Substance: TRASTUZUMAB
     Indication: HER-2 POSITIVE BREAST CANCER
     Route: 065
     Dates: start: 200608, end: 201402

REACTIONS (27)
  - Malignant neoplasm progression [Unknown]
  - Vessel puncture site bruise [Unknown]
  - Cough [Unknown]
  - Glomerular filtration rate decreased [Unknown]
  - Blood lactate dehydrogenase increased [Unknown]
  - Aspartate aminotransferase increased [Unknown]
  - Epidermal growth factor receptor decreased [Unknown]
  - Hypothalamo-pituitary disorder [Unknown]
  - Blood uric acid increased [Unknown]
  - Contusion [Unknown]
  - Weight increased [Unknown]
  - Infusion related reaction [Unknown]
  - Blood glucose decreased [Unknown]
  - Protein total increased [Unknown]
  - Pituitary tumour [Not Recovered/Not Resolved]
  - Carbon dioxide increased [Unknown]
  - White blood cell count increased [Unknown]
  - Haematocrit decreased [Unknown]
  - Red cell distribution width increased [Not Recovered/Not Resolved]
  - Blood phosphorus increased [Unknown]
  - Haemoglobin decreased [Unknown]
  - Thrombosis [Unknown]
  - Weight decreased [Unknown]
  - Neutrophil count increased [Unknown]
  - Nasopharyngitis [Unknown]
  - Diplopia [Recovered/Resolved]
  - Blood creatinine increased [Unknown]

NARRATIVE: CASE EVENT DATE: 200903
